FAERS Safety Report 8126064-X (Version None)
Quarter: 2012Q1

REPORT INFORMATION
  Report Type: 
  Country: None (occurrence: None)
  Receive Date: 20120209
  Receipt Date: 20120130
  Transmission Date: 20120608
  Serious: Yes (Hospitalization, Other)
  Sender: FDA-Public Use
  Company Number: PHHY2010JP06486

PATIENT
  Sex: Male

DRUGS (3)
  1. VITAMEDIN [Concomitant]
     Dosage: 50 MG, UNK
     Dates: start: 20091001
  2. LITHIUM CARBONATE [Concomitant]
     Dosage: 800 MG, UNK
     Route: 048
     Dates: start: 20090501
  3. CLOZARIL [Suspect]
     Dosage: 200 MG DAILY
     Route: 048
     Dates: start: 20100108, end: 20100204

REACTIONS (7)
  - ALANINE AMINOTRANSFERASE INCREASED [None]
  - PYREXIA [None]
  - WHITE BLOOD CELL COUNT INCREASED [None]
  - ASPARTATE AMINOTRANSFERASE INCREASED [None]
  - MALAISE [None]
  - LIVER DISORDER [None]
  - C-REACTIVE PROTEIN INCREASED [None]
